FAERS Safety Report 6331071-3 (Version None)
Quarter: 2009Q3

REPORT INFORMATION
  Report Type: 
  Country: None (occurrence: None)
  Receive Date: 20090827
  Receipt Date: 20090826
  Transmission Date: 20100115
  Serious: Yes (Hospitalization)
  Sender: FDA-Public Use
  Company Number: D0054840A

PATIENT
  Sex: Female
  Weight: 90 kg

DRUGS (8)
  1. REQUIP [Suspect]
     Indication: PARKINSONISM
     Dosage: 2MG THREE TIMES PER DAY
     Route: 048
  2. REQUIP [Suspect]
     Indication: PARKINSONISM
     Dosage: 4MG TWICE PER DAY
     Route: 048
  3. NARCOTIC [Suspect]
     Route: 065
     Dates: start: 20090101, end: 20090101
  4. BETA BLOCKER [Concomitant]
     Route: 065
     Dates: start: 20050101
  5. LEVODOPA [Concomitant]
     Indication: PARKINSONISM
     Route: 065
  6. LEVOPAR [Concomitant]
     Indication: PARKINSONISM
     Dosage: 62.5MG AT NIGHT
     Route: 048
  7. STALEVO 100 [Concomitant]
     Dosage: 50MG FOUR TIMES PER DAY
     Route: 048
  8. PIRIBEDIL [Concomitant]
     Dosage: 50MG FOUR TIMES PER DAY
     Route: 048

REACTIONS (11)
  - ANXIETY [None]
  - ARRHYTHMIA [None]
  - ARTHRALGIA [None]
  - CHEST PAIN [None]
  - HOSPITALISATION [None]
  - INTESTINAL HAEMORRHAGE [None]
  - MOVEMENT DISORDER [None]
  - MUSCULOSKELETAL STIFFNESS [None]
  - PAIN [None]
  - TACHYCARDIA [None]
  - TREMOR [None]
